FAERS Safety Report 7867714-2 (Version None)
Quarter: 2011Q4

REPORT INFORMATION
  Report Type: 
  Country: None (occurrence: None)
  Receive Date: 20111026
  Receipt Date: 20111019
  Transmission Date: 20120403
  Serious: Yes (Other)
  Sender: FDA-Public Use
  Company Number: AUR-APL-2011-05090

PATIENT
  Age: 64 Year
  Sex: Female
  Weight: 108 kg

DRUGS (8)
  1. CUBICIN [Suspect]
     Indication: OSTEOMYELITIS
     Dosage: (500 MG),
     Dates: start: 20110630, end: 20110719
  2. FUROSEMIDE [Concomitant]
  3. ACETAMINOPHEN [Concomitant]
  4. CITALOPRAM HYDROBROMIDE [Concomitant]
  5. ROPINIROLE [Concomitant]
  6. DOMPERIDONE [Concomitant]
  7. TRAMADOL HCL [Concomitant]
  8. CIPROFLOXACIN HYDROCHLORIDE [Suspect]
     Indication: OSTEOMYELITIS
     Dosage: 1500 MG (750 MG, 2 IN 1 D), ORAL
     Route: 048
     Dates: start: 20110629, end: 20110719

REACTIONS (2)
  - NERVE DEGENERATION [None]
  - NEUROPATHY PERIPHERAL [None]
